FAERS Safety Report 15963219 (Version 2)
Quarter: 2019Q1

REPORT INFORMATION
  Report Type: Spontaneous
  Country: US (occurrence: US)
  Receive Date: 20190214
  Receipt Date: 20190325
  Transmission Date: 20190417
  Serious: Yes (Other)
  Sender: FDA-Public Use
  Company Number: US-AKORN PHARMACEUTICALS-2019AKN00207

PATIENT
  Age: 20 Year
  Sex: Male
  Weight: 69.75 kg

DRUGS (6)
  1. MYORISAN [Suspect]
     Active Substance: ISOTRETINOIN
     Indication: ACNE CYSTIC
     Dosage: 40 MG, 1X/DAY
     Route: 048
     Dates: start: 20181212, end: 20190111
  2. MYORISAN [Suspect]
     Active Substance: ISOTRETINOIN
     Indication: ACNE CYSTIC
     Dosage: 30 MG, 2X/DAY
     Route: 048
     Dates: start: 20190111, end: 20190117
  3. MYORISAN [Suspect]
     Active Substance: ISOTRETINOIN
     Dosage: 30 MG, ONCE
     Route: 048
     Dates: start: 20190121, end: 20190121
  4. MINOCYCLINE [Suspect]
     Active Substance: MINOCYCLINE\MINOCYCLINE HYDROCHLORIDE
     Indication: ACNE CYSTIC
     Dosage: UNK
     Dates: start: 20181211
  5. MYORISAN [Suspect]
     Active Substance: ISOTRETINOIN
     Dosage: 30 MG, 1X/DAY
     Route: 048
     Dates: start: 20190118, end: 20190118
  6. MYORISAN [Suspect]
     Active Substance: ISOTRETINOIN
     Dosage: 30 MG EVERY DAY ALTERNATING WITH TWICE DAILY
     Route: 048
     Dates: start: 20190130

REACTIONS (9)
  - Pain of skin [Recovered/Resolved]
  - Off label use [Not Recovered/Not Resolved]
  - Streptococcal infection [Recovered/Resolved]
  - Contraindicated product prescribed [Recovered/Resolved]
  - Skin infection [Recovered/Resolved]
  - Swelling face [Recovered/Resolved]
  - Staphylococcal skin infection [Recovered/Resolved]
  - Dry skin [Not Recovered/Not Resolved]
  - Drug effect incomplete [Recovered/Resolved]

NARRATIVE: CASE EVENT DATE: 20181211
